FAERS Safety Report 15773120 (Version 1)
Quarter: 2018Q4

REPORT INFORMATION
  Report Type: Spontaneous
  Country: US (occurrence: US)
  Receive Date: 20181228
  Receipt Date: 20181228
  Transmission Date: 20190205
  Serious: No
  Sender: FDA-Public Use
  Company Number: US-SA-2018SA396154

PATIENT
  Age: 16 Year
  Sex: Female
  Weight: 53.52 kg

DRUGS (1)
  1. DUPIXENT [Suspect]
     Active Substance: DUPILUMAB
     Indication: DERMATITIS ATOPIC
     Dosage: 300 MG, QOW
     Route: 058
     Dates: start: 201809

REACTIONS (4)
  - Injection site pain [Unknown]
  - Injection site oedema [Unknown]
  - Injection site mass [Unknown]
  - Product use issue [Unknown]

NARRATIVE: CASE EVENT DATE: 201809
